FAERS Safety Report 11604338 (Version 1)
Quarter: 2015Q4

REPORT INFORMATION
  Report Type: Spontaneous
  Country: US (occurrence: None)
  Receive Date: 20151006
  Receipt Date: 20151006
  Transmission Date: 20160304
  Serious: Yes (Other)
  Sender: FDA-Public Use
  Company Number: None

PATIENT
  Age: 21 Year
  Sex: Female
  Weight: 61.24 kg

DRUGS (4)
  1. MIRENA [Suspect]
     Active Substance: LEVONORGESTREL
  2. ORTHO CYCLEN [Concomitant]
     Active Substance: ETHINYL ESTRADIOL\NORGESTIMATE
  3. LUTERA [Concomitant]
     Active Substance: ETHINYL ESTRADIOL\LEVONORGESTREL
  4. DEPO SHOTS [Concomitant]

REACTIONS (8)
  - Depression [None]
  - Libido decreased [None]
  - Weight increased [None]
  - Migraine [None]
  - Ovarian cyst ruptured [None]
  - Weight decreased [None]
  - Medical device complication [None]
  - Ovarian cyst [None]

NARRATIVE: CASE EVENT DATE: 20120420
